FAERS Safety Report 5579385-9 (Version None)
Quarter: 2008Q1

REPORT INFORMATION
  Report Type: 
  Country: None (occurrence: None)
  Receive Date: 20080102
  Receipt Date: 20071221
  Transmission Date: 20080703
  Serious: Yes (Life-Threatening, Hospitalization)
  Sender: FDA-Public Use
  Company Number: NL-BRISTOL-MYERS SQUIBB COMPANY-14027114

PATIENT
  Age: 71 Year
  Sex: Male

DRUGS (11)
  1. HOLOXAN [Suspect]
     Indication: LEIOMYOSARCOMA
     Dosage: 5500 MG AS NEEDED, THERAPY DATE 2007
     Route: 065
     Dates: start: 20070127
  2. PARACETAMOL [Suspect]
  3. ASCAL CARDIO [Concomitant]
  4. LOSEC I.V. [Concomitant]
  5. LYRICA [Concomitant]
  6. TRYPTIZOL [Concomitant]
  7. ALGELDRATE [Concomitant]
  8. OXYCONTIN [Concomitant]
  9. SIMVASTATIN [Concomitant]
  10. ADRIAMYCIN PFS [Concomitant]
     Dates: start: 19980101
  11. CAELYX [Concomitant]
     Dates: start: 20060601, end: 20060801

REACTIONS (1)
  - ARTERIAL OCCLUSIVE DISEASE [None]
